FAERS Safety Report 5312346-3 (Version None)
Quarter: 2007Q2

REPORT INFORMATION
  Report Type: 
  Country: None (occurrence: None)
  Receive Date: 20070430
  Receipt Date: 20061228
  Transmission Date: 20071010
  Serious: No
  Sender: FDA-Public Use
  Company Number: 2006UW22678

PATIENT
  Age: 866 Month
  Sex: Female
  Weight: 66.2 kg

DRUGS (3)
  1. NEXIUM [Suspect]
     Indication: ULCER
     Route: 048
     Dates: start: 20060201
  2. NEXIUM [Suspect]
     Route: 048
  3. EVISTA [Concomitant]

REACTIONS (2)
  - DRUG ERUPTION [None]
  - TINEA INFECTION [None]
